FAERS Safety Report 18757092 (Version 3)
Quarter: 2021Q1

REPORT INFORMATION
  Report Type: Report from Study
  Country: US (occurrence: US)
  Receive Date: 20210119
  Receipt Date: 20210309
  Transmission Date: 20210419
  Serious: Yes (Hospitalization, Other)
  Sender: FDA-Public Use
  Company Number: NVSC2021US006698

PATIENT
  Age: 45 Year
  Sex: Male

DRUGS (2)
  1. ENTRESTO [Suspect]
     Active Substance: SACUBITRIL\VALSARTAN
     Dosage: UNK
     Route: 048
  2. ENTRESTO [Suspect]
     Active Substance: SACUBITRIL\VALSARTAN
     Indication: PRODUCT USED FOR UNKNOWN INDICATION
     Dosage: UNK, BID
     Route: 048
     Dates: start: 202007

REACTIONS (7)
  - Throat clearing [Unknown]
  - Post procedural infection [Recovering/Resolving]
  - Decreased activity [Unknown]
  - Myocardial infarction [Unknown]
  - Frustration tolerance decreased [Unknown]
  - Cough [Unknown]
  - Dyspnoea [Unknown]
